FAERS Safety Report 6903844-7 (Version None)
Quarter: 2010Q3

REPORT INFORMATION
  Report Type: 
  Country: None (occurrence: None)
  Receive Date: 20100804
  Receipt Date: 20090108
  Transmission Date: 20110219
  Serious: No
  Sender: FDA-Public Use
  Company Number: US-PFIZER INC-2008097937

PATIENT
  Sex: Female
  Weight: 85.3 kg

DRUGS (3)
  1. LYRICA [Suspect]
     Dosage: 75 MG, 1X/DAY
     Dates: start: 20081001, end: 20081001
  2. ASPIRIN [Suspect]
     Dates: end: 20080101
  3. CYMBALTA [Concomitant]

REACTIONS (2)
  - ANAEMIA [None]
  - CONTUSION [None]
